FAERS Safety Report 26134605 (Version 1)
Quarter: 2025Q4

REPORT INFORMATION
  Report Type: Report from Study
  Country: AU (occurrence: AU)
  Receive Date: 20251209
  Receipt Date: 20251209
  Transmission Date: 20260119
  Serious: Yes (Other)
  Sender: ROCHE
  Company Number: AU-ROCHE-10000162400

PATIENT
  Age: 59 Year
  Sex: Female

DRUGS (1)
  1. OCREVUS [Suspect]
     Active Substance: OCRELIZUMAB
     Indication: Relapsing-remitting multiple sclerosis
     Dosage: HAS COMPLETED FIRST 2 HALF DOSE INFUSIONS
     Route: 041
     Dates: start: 20241202

REACTIONS (7)
  - Hot flush [Recovered/Resolved]
  - Paraesthesia oral [Recovered/Resolved]
  - Dry eye [Recovered/Resolved]
  - Rash pruritic [Recovered/Resolved]
  - Pain in extremity [Unknown]
  - Multiple sclerosis [Unknown]
  - Limb discomfort [Unknown]

NARRATIVE: CASE EVENT DATE: 20241202
